FAERS Safety Report 6874491-0 (Version None)
Quarter: 2010Q3

REPORT INFORMATION
  Report Type: 
  Country: None (occurrence: None)
  Receive Date: 20100723
  Receipt Date: 20100723
  Transmission Date: 20110219
  Serious: No
  Sender: FDA-Public Use
  Company Number: None

PATIENT
  Age: 30 Year
  Sex: Male
  Weight: 64.4108 kg

DRUGS (1)
  1. CIPROFLOXACIN HCL [Suspect]
     Indication: PROSTATITIS
     Dosage: 500MG TWICE/DAY PO
     Route: 048
     Dates: start: 20091014, end: 20091019

REACTIONS (6)
  - ABASIA [None]
  - ARTHROPATHY [None]
  - NEUROPATHY PERIPHERAL [None]
  - TENDON DISORDER [None]
  - TINNITUS [None]
  - VISUAL IMPAIRMENT [None]
